FAERS Safety Report 14721183 (Version 1)
Quarter: 2018Q2

REPORT INFORMATION
  Report Type: Spontaneous
  Country: GR (occurrence: GR)
  Receive Date: 20180405
  Receipt Date: 20180405
  Transmission Date: 20180711
  Serious: Yes (Other)
  Sender: FDA-Public Use
  Company Number: IND-GR-009507513-1804GRC000835

PATIENT
  Age: 82 Year
  Sex: Female

DRUGS (13)
  1. NORGESIC (ACETAMINOPHEN (+) ORPHENADRINE CITRATE) [Suspect]
     Active Substance: ACETAMINOPHEN\ORPHENADRINE CITRATE
     Route: 048
  2. NEXIUM [Concomitant]
     Active Substance: ESOMEPRAZOLE MAGNESIUM
     Route: 048
  3. DYNASTAT [Suspect]
     Active Substance: PARECOXIB SODIUM
     Route: 030
  4. MICARDIS PLUS [Concomitant]
     Active Substance: HYDROCHLOROTHIAZIDE\TELMISARTAN
     Route: 048
  5. FISIOTENS [Concomitant]
     Active Substance: MOXONIDINE
     Route: 048
  6. GLUCOPHAGE [Concomitant]
     Active Substance: METFORMIN HYDROCHLORIDE
     Route: 048
  7. SALOSPIR [Concomitant]
     Active Substance: ASPIRIN
     Route: 048
  8. JANUVIA [Concomitant]
     Active Substance: SITAGLIPTIN PHOSPHATE
     Route: 048
  9. NEURONTIN [Concomitant]
     Active Substance: GABAPENTIN
  10. ZYLAPOUR [Concomitant]
     Route: 048
  11. ARCOXIA [Suspect]
     Active Substance: ETORICOXIB
     Route: 048
  12. TENORMIN [Concomitant]
     Active Substance: ATENOLOL
     Route: 048
  13. LIPITOR [Concomitant]
     Active Substance: ATORVASTATIN CALCIUM
     Route: 048

REACTIONS (3)
  - Face oedema [Not Recovered/Not Resolved]
  - Pruritus [Not Recovered/Not Resolved]
  - Pigmentation disorder [Not Recovered/Not Resolved]
